FAERS Safety Report 8521671-4 (Version None)
Quarter: 2012Q3

REPORT INFORMATION
  Report Type: 
  Country: None (occurrence: None)
  Receive Date: 20120719
  Receipt Date: 20120709
  Transmission Date: 20120928
  Serious: Yes (Other)
  Sender: FDA-Public Use
  Company Number: JP-VERTEX PHARMACEUTICALS INC.-AE-2012-008316

PATIENT
  Age: 49 Year
  Sex: Male

DRUGS (20)
  1. REBETOL [Concomitant]
     Route: 048
     Dates: start: 20120406, end: 20120511
  2. PEG-INTRON [Concomitant]
     Indication: HEPATITIS C
     Route: 058
     Dates: start: 20120216, end: 20120301
  3. PEG-INTRON [Concomitant]
     Route: 058
     Dates: start: 20120413, end: 20120413
  4. PROMACTA [Concomitant]
     Route: 048
     Dates: end: 20120510
  5. TELAVIC (TELAPREVIR) [Suspect]
     Indication: HEPATITIS C
     Route: 048
     Dates: start: 20120216, end: 20120322
  6. REBETOL [Concomitant]
     Route: 048
     Dates: start: 20120316, end: 20120322
  7. REBETOL [Concomitant]
     Route: 048
     Dates: start: 20120412
  8. PEG-INTRON [Concomitant]
     Route: 058
     Dates: start: 20120511, end: 20120518
  9. CONFATANIN [Concomitant]
     Route: 048
     Dates: start: 20120216, end: 20120519
  10. LANIZAC [Concomitant]
     Route: 048
     Dates: start: 20120224
  11. REBETOL [Concomitant]
     Indication: HEPATITIS C
     Route: 048
     Dates: start: 20120216, end: 20120315
  12. PEG-INTRON [Concomitant]
     Route: 058
     Dates: start: 20120330
  13. PROMACTA [Concomitant]
     Route: 048
     Dates: start: 20120511
  14. TELAVIC (TELAPREVIR) [Suspect]
     Route: 048
     Dates: start: 20120323, end: 20120330
  15. REBETOL [Concomitant]
     Route: 048
     Dates: start: 20120323, end: 20120330
  16. PEG-INTRON [Concomitant]
     Route: 058
     Dates: start: 20120316, end: 20120329
  17. PEG-INTRON [Concomitant]
     Route: 058
     Dates: start: 20120420, end: 20120504
  18. TELAVIC (TELAPREVIR) [Suspect]
     Route: 048
     Dates: start: 20120406, end: 20120510
  19. PEG-INTRON [Concomitant]
     Route: 058
     Dates: start: 20120302, end: 20120315
  20. PEG-INTRON [Concomitant]
     Route: 058
     Dates: start: 20120330, end: 20120406

REACTIONS (7)
  - PLATELET COUNT DECREASED [None]
  - GINGIVITIS [None]
  - HYPERURICAEMIA [None]
  - ARTHRALGIA [None]
  - HAEMOGLOBIN DECREASED [None]
  - STOMATITIS [None]
  - GOUT [None]
